FAERS Safety Report 8951130 (Version 1)
Quarter: 2012Q4

REPORT INFORMATION
  Report Type: 
  Country: JO (occurrence: JO)
  Receive Date: 20121207
  Receipt Date: 20121207
  Transmission Date: 20130627
  Serious: Yes (Death)
  Sender: FDA-Public Use
  Company Number: JO-MERCK-1211JOR012679

PATIENT
  Age: 19 Year
  Sex: Male

DRUGS (2)
  1. MK-0683 [Suspect]
     Indication: BRAIN NEOPLASM
     Dosage: 300 mg, qd
     Route: 048
     Dates: start: 20110401, end: 201211
  2. PREDNISONE [Concomitant]
     Dosage: 20 mg, UNK

REACTIONS (1)
  - Death [Fatal]
